FAERS Safety Report 6132591-7 (Version None)
Quarter: 2009Q1

REPORT INFORMATION
  Report Type: 
  Country: None (occurrence: None)
  Receive Date: 20090324
  Receipt Date: 20090309
  Transmission Date: 20090719
  Serious: Yes (Disabling)
  Sender: FDA-Public Use
  Company Number: 038588

PATIENT
  Age: 69 Year
  Sex: Female
  Weight: 56 kg

DRUGS (4)
  1. BISOPROLOL FUMARATE [Suspect]
     Indication: HYPERTENSION
     Dosage: 1 DOSAGE FORMS (1 IN 1 D), ORAL
     Route: 048
     Dates: end: 20090101
  2. PRAVASTATIN SODIUM [Suspect]
     Dosage: ORAL
     Route: 048
     Dates: start: 20080701, end: 20081201
  3. NONSTEROIDAL ANTI-INFLAMMATORY ANALGESIC THERAPY [Suspect]
     Indication: SPONDYLITIS
  4. ACETAMINOPHEN W/ CODEINE [Suspect]
     Indication: SPONDYLITIS

REACTIONS (5)
  - DEAFNESS NEUROSENSORY [None]
  - EAR INFECTION [None]
  - EUSTACHIAN TUBE DISORDER [None]
  - INNER EAR DISORDER [None]
  - TINNITUS [None]
